FAERS Safety Report 14394072 (Version 1)
Quarter: 2018Q1

REPORT INFORMATION
  Report Type: Spontaneous
  Country: US (occurrence: US)
  Receive Date: 20180116
  Receipt Date: 20180116
  Transmission Date: 20180509
  Serious: No
  Sender: FDA-Public Use
  Company Number: US-REGENERON PHARMACEUTICALS, INC.-2017-12790

PATIENT

DRUGS (5)
  1. EYLEA [Suspect]
     Active Substance: AFLIBERCEPT
     Indication: EYE HAEMORRHAGE
     Dosage: LEFT EYE (OS)
     Dates: start: 20170209, end: 20170209
  2. LOTREL [Concomitant]
     Active Substance: AMLODIPINE BESYLATE\BENAZEPRIL HYDROCHLORIDE
     Indication: BLOOD PRESSURE MEASUREMENT
  3. EYLEA [Suspect]
     Active Substance: AFLIBERCEPT
     Indication: EYE INJURY
  4. EYLEA [Suspect]
     Active Substance: AFLIBERCEPT
     Indication: RETINAL TEAR
     Dosage: LEFT EYE (OS)
     Dates: start: 201610
  5. EYLEA [Suspect]
     Active Substance: AFLIBERCEPT
     Indication: EYE HAEMORRHAGE

REACTIONS (5)
  - Asthenopia [Recovered/Resolved]
  - Off label use [Unknown]
  - Abnormal sensation in eye [Recovered/Resolved]
  - Foreign body sensation in eyes [Unknown]
  - Vitreous floaters [Recovered/Resolved]

NARRATIVE: CASE EVENT DATE: 201610
